FAERS Safety Report 25976851 (Version 1)
Quarter: 2025Q4

REPORT INFORMATION
  Report Type: Spontaneous
  Country: US (occurrence: US)
  Receive Date: 20251029
  Receipt Date: 20251029
  Transmission Date: 20260118
  Serious: No
  Sender: ETON PHARMACEUTICALS, INC
  Company Number: US-IPSEN Group, Research and Development-2025-07578

PATIENT

DRUGS (3)
  1. INCRELEX [Suspect]
     Active Substance: MECASERMIN
     Indication: Primary insulin like growth factor-1 deficiency
     Dosage: 2 MILLIGRAM, Q12H
     Route: 058
     Dates: start: 20250102
  2. INCRELEX [Suspect]
     Active Substance: MECASERMIN
     Indication: Failure to thrive
     Dosage: UNK
  3. INCRELEX [Suspect]
     Active Substance: MECASERMIN
     Indication: Off label use

REACTIONS (6)
  - Conjunctivitis [Unknown]
  - Nasopharyngitis [Unknown]
  - Pyrexia [Unknown]
  - Product dose omission issue [Unknown]
  - Illness [Unknown]
  - Off label use [Unknown]

NARRATIVE: CASE EVENT DATE: 20250102
